FAERS Safety Report 9260490 (Version 1)
Quarter: 2013Q2

REPORT INFORMATION
  Report Type: Spontaneous
  Country: FR (occurrence: FR)
  Receive Date: 20130429
  Receipt Date: 20130429
  Transmission Date: 20140414
  Serious: Yes (Hospitalization)
  Sender: FDA-Public Use
  Company Number: FR-BAYER-2013-051001

PATIENT
  Age: 62 Year
  Sex: Female

DRUGS (8)
  1. CIPROFLOXACIN [Suspect]
     Indication: NOCARDIOSIS
     Dosage: 500 MG, TID
  2. CIPROFLOXACIN [Suspect]
     Indication: BRAIN ABSCESS
  3. CEFTRIAXONE [Concomitant]
     Indication: PNEUMONIA
     Dosage: 1 G, QD
     Route: 042
  4. AMIKACIN [Concomitant]
     Indication: PNEUMONIA
     Dosage: 900 MG, QD
     Route: 042
  5. AMIKACIN [Concomitant]
     Indication: PNEUMONIA BACTERIAL
  6. IMIPENEM [Concomitant]
     Indication: PNEUMONIA BACTERIAL
     Dosage: 1 G, TID
  7. LINEZOLID [Concomitant]
     Indication: NOCARDIOSIS
     Dosage: 600 MG, BID
  8. LINEZOLID [Concomitant]
     Indication: BRAIN ABSCESS

REACTIONS (2)
  - Aphasia [Recovering/Resolving]
  - Drug ineffective [None]
